FAERS Safety Report 7297198-7 (Version None)
Quarter: 2011Q1

REPORT INFORMATION
  Report Type: 
  Country: None (occurrence: None)
  Receive Date: 20110204
  Receipt Date: 20110121
  Transmission Date: 20110831
  Serious: Yes (Other)
  Sender: FDA-Public Use
  Company Number: 2009-0507

PATIENT
  Age: 62 Year
  Sex: Female
  Weight: 67 kg

DRUGS (3)
  1. PRETERAX (BI PREDONIUM) [Concomitant]
  2. SOMATULINE DEPOT [Suspect]
     Indication: ACROMEGALY
     Dosage: ONCE EVERY 28 DAYS (90 MG,1 IN 28 D),INTRAMUSCULAR
     Route: 030
     Dates: start: 20070101, end: 20090306
  3. STAGID (METFORMIN EMBONATE) [Concomitant]

REACTIONS (6)
  - CHOLELITHIASIS [None]
  - MICROLITHIASIS [None]
  - URTICARIA [None]
  - LIVER DISORDER [None]
  - CHOLESTASIS [None]
  - CYTOLYTIC HEPATITIS [None]
